FAERS Safety Report 21379696 (Version 1)
Quarter: 2022Q3

REPORT INFORMATION
  Report Type: Spontaneous
  Country: CM (occurrence: CM)
  Receive Date: 20220927
  Receipt Date: 20220927
  Transmission Date: 20221027
  Serious: Yes (Other)
  Sender: FDA-Public Use
  Company Number: CM-NOVARTISPH-NVSC2022CM216375

PATIENT
  Age: 36 Year
  Weight: 90 kg

DRUGS (1)
  1. AMOXICILLIN [Suspect]
     Active Substance: AMOXICILLIN
     Indication: Traumatic tooth displacement
     Dosage: 1 G, BID
     Route: 048
     Dates: start: 20220901, end: 20220910

REACTIONS (1)
  - Alveolitis [Not Recovered/Not Resolved]

NARRATIVE: CASE EVENT DATE: 20220905
